FAERS Safety Report 8777144 (Version 1)
Quarter: 2012Q4

REPORT INFORMATION
  Report Type: 
  Country: DE (occurrence: DE)
  Receive Date: 20120911
  Receipt Date: 20120911
  Transmission Date: 20130627
  Serious: Yes (Life-Threatening, Hospitalization)
  Sender: FDA-Public Use
  Company Number: DE-BRISTOL-MYERS SQUIBB COMPANY-16925877

PATIENT
  Age: 57 Year
  Sex: Female

DRUGS (10)
  1. ABILIFY [Suspect]
     Dosage: 11Oct11-12Oct11:15mg
13Oct11-29Nov11:30mg once per day,increased
     Route: 048
     Dates: start: 20111011, end: 20111129
  2. NEUROCIL [Suspect]
     Dosage: 08Nov11-16Nov11,Dose increased-100mg once per day on 17Nov11.
     Route: 048
     Dates: start: 20111108
  3. L-THYROXINE [Suspect]
     Route: 048
     Dates: start: 20111117
  4. ORFIRIL [Suspect]
     Dosage: 17Oct11-1Nov11:500mg
02NOv11-25Nov11:1000mg increased
26Nov11-29Nov11:1500mg.increased
     Route: 048
     Dates: start: 20111017, end: 20111129
  5. DIAZEPAM [Suspect]
     Indication: RESPIRATORY DEPRESSION
     Dosage: 12Oct11-22Nov11:25mg,
23Nov11-25Nov11:Dose reduced:20mg
26Nov11-29Nov11:reduced 15mg
     Route: 048
     Dates: start: 20111012, end: 20111129
  6. CLOZAPINE [Suspect]
     Indication: RESPIRATORY DEPRESSION
     Dosage: 18Nv-19Nv,20Nv-21Nv11:25mginc,22Nv-23Nv:50mg,24Nv-27Nv11:75mg,26Nv-27Nv11:100mg,26Nv-29Nv11:150mg.
     Route: 048
     Dates: start: 20111118, end: 20111129
  7. HALDOL DECANOATE [Suspect]
     Route: 030
     Dates: start: 20111125
  8. BISOPROLOL [Concomitant]
     Route: 048
     Dates: start: 2009
  9. LASIX [Concomitant]
     Route: 048
     Dates: start: 2009
  10. CLEXANE [Concomitant]
     Route: 048
     Dates: start: 20111124

REACTIONS (4)
  - Pneumonia aspiration [Not Recovered/Not Resolved]
  - Salivary hypersecretion [Not Recovered/Not Resolved]
  - Psychotic disorder [Not Recovered/Not Resolved]
  - Blood creatine phosphokinase increased [Not Recovered/Not Resolved]
